FAERS Safety Report 13309851 (Version 1)
Quarter: 2017Q1

REPORT INFORMATION
  Report Type: Spontaneous
  Country: US (occurrence: US)
  Receive Date: 20170308
  Receipt Date: 20170308
  Transmission Date: 20170428
  Serious: No
  Sender: FDA-Public Use
  Company Number: None

PATIENT
  Sex: Female

DRUGS (1)
  1. TOBI PODHALER [Suspect]
     Active Substance: TOBRAMYCIN
     Indication: PRODUCT USED FOR UNKNOWN INDICATION
     Dosage: ORAL INHALATION
     Route: 055
     Dates: start: 20160916, end: 20170307

REACTIONS (4)
  - Oral pain [None]
  - Oropharyngeal pain [None]
  - Gingival pain [None]
  - Toothache [None]
